FAERS Safety Report 19029186 (Version 1)
Quarter: 2021Q1

REPORT INFORMATION
  Report Type: Other
  Country: ES (occurrence: ES)
  Receive Date: 20210319
  Receipt Date: 20210319
  Transmission Date: 20210420
  Serious: Yes (Other)
  Sender: FDA-Public Use
  Company Number: ES-ENCUBE-000048

PATIENT
  Age: 58 Year
  Sex: Female

DRUGS (7)
  1. CLINDAMYCIN. [Suspect]
     Active Substance: CLINDAMYCIN
     Indication: SKIN LESION
  2. CLOXACILLIN [Suspect]
     Active Substance: CLOXACILLIN
     Indication: SWELLING
  3. CLINDAMYCIN. [Suspect]
     Active Substance: CLINDAMYCIN
     Indication: PYREXIA
  4. CLOXACILLIN [Suspect]
     Active Substance: CLOXACILLIN
     Indication: SKIN LESION
  5. CLOXACILLIN [Suspect]
     Active Substance: CLOXACILLIN
     Indication: PYREXIA
     Dosage: FEBRILE EPISODE 48 HOURS AFTER?INJURY
  6. CLINDAMYCIN. [Suspect]
     Active Substance: CLINDAMYCIN
     Indication: SKIN LESION
  7. CLINDAMYCIN. [Suspect]
     Active Substance: CLINDAMYCIN
     Indication: ERYTHEMA
     Dosage: ILL DEFINED ERYTHEMATOUS RAISED LESION?WITH PURULENT DISCHARGE AT THE WOUND SITE

REACTIONS (4)
  - Drug ineffective [Unknown]
  - Skin mass [Recovered/Resolved]
  - Ulcer [Recovered/Resolved]
  - Epidermal necrosis [Recovered/Resolved]
